FAERS Safety Report 12223214 (Version 1)
Quarter: 2016Q1

REPORT INFORMATION
  Report Type: Report from Study
  Country: US (occurrence: US)
  Receive Date: 20160330
  Receipt Date: 20160330
  Transmission Date: 20160526
  Serious: Yes (Other)
  Sender: FDA-Public Use
  Company Number: US-ABBVIE-16K-163-1588166-00

PATIENT
  Sex: Female

DRUGS (2)
  1. HUMIRA [Suspect]
     Active Substance: ADALIMUMAB
     Route: 058
     Dates: start: 20160304
  2. HUMIRA [Suspect]
     Active Substance: ADALIMUMAB
     Indication: PSORIATIC ARTHROPATHY
     Route: 058
     Dates: start: 20151028, end: 20160302

REACTIONS (6)
  - Productive cough [Unknown]
  - Psoriatic arthropathy [Not Recovered/Not Resolved]
  - Sputum discoloured [Unknown]
  - Malaise [Unknown]
  - Diarrhoea [Unknown]
  - Haemoptysis [Unknown]
